FAERS Safety Report 17213432 (Version 1)
Quarter: 2020Q1

REPORT INFORMATION
  Report Type: Spontaneous
  Country: US (occurrence: US)
  Receive Date: 20191227
  Receipt Date: 20191227
  Transmission Date: 20200409
  Serious: No
  Sender: FDA-Public Use
  Company Number: None

PATIENT
  Age: 41 Year
  Sex: Female
  Weight: 60.1 kg

DRUGS (2)
  1. OXALIPLATIN 100MG/20 ML [Suspect]
     Active Substance: OXALIPLATIN
     Indication: COLON CANCER
     Dates: start: 20191204, end: 20191226
  2. OXALIPLATIN. [Concomitant]
     Active Substance: OXALIPLATIN
     Dates: start: 20191204, end: 20191226

REACTIONS (3)
  - Dysarthria [None]
  - Aphasia [None]
  - Hemiparesis [None]

NARRATIVE: CASE EVENT DATE: 20191226
